FAERS Safety Report 18962612 (Version 1)
Quarter: 2021Q1

REPORT INFORMATION
  Report Type: Spontaneous
  Country: US (occurrence: US)
  Receive Date: 20210302
  Receipt Date: 20210302
  Transmission Date: 20210420
  Serious: Yes (Death)
  Sender: FDA-Public Use
  Company Number: None

PATIENT
  Age: 70 Year
  Sex: Female
  Weight: 63.9 kg

DRUGS (1)
  1. XELODA [Suspect]
     Active Substance: CAPECITABINE
     Indication: BREAST CANCER
     Dates: start: 20210122, end: 20210205

REACTIONS (16)
  - Febrile neutropenia [None]
  - Cough [None]
  - Mucosal inflammation [None]
  - Palmar-plantar erythrodysaesthesia syndrome [None]
  - Tremor [None]
  - Hypertension [None]
  - Fall [None]
  - Weight decreased [None]
  - Diarrhoea [None]
  - Toxicity to various agents [None]
  - Dry mouth [None]
  - Anxiety [None]
  - Respiratory failure [None]
  - Fatigue [None]
  - Decreased appetite [None]
  - Dihydropyrimidine dehydrogenase deficiency [None]

NARRATIVE: CASE EVENT DATE: 20210205
